FAERS Safety Report 6659030-1 (Version None)
Quarter: 2010Q1

REPORT INFORMATION
  Report Type: 
  Country: None (occurrence: None)
  Receive Date: 20100330
  Receipt Date: 20100317
  Transmission Date: 20100710
  Serious: Yes (Hospitalization, Other)
  Sender: FDA-Public Use
  Company Number: US-CELGENEUS-163-21880-10031549

PATIENT
  Age: 73 Year
  Sex: Male
  Weight: 52.4 kg

DRUGS (4)
  1. REVLIMID [Suspect]
     Indication: PROSTATE CANCER
     Route: 048
     Dates: start: 20100301, end: 20100307
  2. DOCETAXEL [Suspect]
     Indication: PROSTATE CANCER
     Route: 051
     Dates: start: 20100301, end: 20100302
  3. BEVACIZUMAB [Suspect]
     Indication: PROSTATE CANCER
     Route: 051
     Dates: start: 20100301, end: 20100302
  4. PREDNISONE [Suspect]
     Indication: PROSTATE CANCER
     Route: 048
     Dates: start: 20100301, end: 20100316

REACTIONS (3)
  - HYPOALBUMINAEMIA [None]
  - NEUTROPENIA [None]
  - RASH [None]
